FAERS Safety Report 9268839 (Version 5)
Quarter: 2014Q1

REPORT INFORMATION
  Report Type: Spontaneous
  Country: US (occurrence: US)
  Receive Date: 20130502
  Receipt Date: 20140225
  Transmission Date: 20141002
  Serious: Yes (Hospitalization, Disabling, Other)
  Sender: FDA-Public Use
  Company Number: US-009507513-1304USA016978

PATIENT
  Sex: Female
  Weight: 190 kg

DRUGS (11)
  1. FOSAMAX [Suspect]
     Indication: OSTEOPENIA
     Dosage: 70 MG, QW
     Route: 048
     Dates: start: 200309
  2. FOSAMAX [Suspect]
     Dosage: 35 MG, UNK
     Route: 048
  3. ALENDRONATE SODIUM [Suspect]
     Indication: OSTEOPENIA
     Dosage: 70 MG, QW
     Route: 048
     Dates: start: 200807, end: 2010
  4. VITAMINS (UNSPECIFIED) [Concomitant]
     Dosage: UNK, QD
     Dates: start: 2000
  5. CALCIUM (UNSPECIFIED) [Concomitant]
     Dosage: 1630 MG, BID
     Dates: start: 2007
  6. UBIDECARENONE [Concomitant]
     Dosage: 300 MG, QD
     Dates: start: 2007
  7. MAGNESIUM (UNSPECIFIED) [Concomitant]
     Dosage: 200 MG, BID
     Dates: start: 2007
  8. GLUCOSAMINE [Concomitant]
     Dosage: 750 MG, BID
     Dates: start: 2007
  9. VITAMIN B COMPLEX [Concomitant]
     Dosage: 1 DF, QD
     Dates: start: 2007
  10. IMITREX (SUMATRIPTAN) [Concomitant]
     Indication: MIGRAINE
     Dosage: UNK, PRN
     Dates: start: 1990
  11. AROMASIN [Concomitant]
     Indication: INVASIVE DUCTAL BREAST CARCINOMA
     Dosage: UNK
     Dates: start: 200406, end: 201007

REACTIONS (11)
  - Intramedullary rod insertion [Unknown]
  - Hand fracture [Unknown]
  - Laceration [Unknown]
  - Papillary thyroid cancer [Unknown]
  - Thyroidectomy [Unknown]
  - Femur fracture [Unknown]
  - Hypertension [Unknown]
  - Anaemia [Unknown]
  - Arthropod bite [Unknown]
  - Nail infection [Unknown]
  - Bone scan abnormal [Unknown]
